FAERS Safety Report 10228355 (Version 1)
Quarter: 2014Q2

REPORT INFORMATION
  Report Type: Spontaneous
  Country: JM (occurrence: JP)
  Receive Date: 20140610
  Receipt Date: 20140610
  Transmission Date: 20141212
  Serious: Yes (Other)
  Sender: FDA-Public Use
  Company Number: JM-CELGENEUS-087-21660-14061215

PATIENT
  Age: 67 Year
  Sex: Female

DRUGS (1)
  1. ABRAXANE [Suspect]
     Indication: BREAST CANCER METASTATIC
     Dosage: 248 MILLIGRAM
     Route: 050
     Dates: start: 201108

REACTIONS (2)
  - Intentional product misuse [Unknown]
  - Erythema [Recovered/Resolved]
